FAERS Safety Report 23791567 (Version 1)
Quarter: 2024Q2

REPORT INFORMATION
  Report Type: Spontaneous
  Country: US (occurrence: US)
  Receive Date: 20240429
  Receipt Date: 20240429
  Transmission Date: 20240715
  Serious: Yes (Death, Other)
  Sender: FDA-Public Use
  Company Number: US-SPECGX-T202400984

PATIENT
  Age: 65 Year
  Sex: Female

DRUGS (3)
  1. POSACONAZOLE [Suspect]
     Active Substance: POSACONAZOLE
     Indication: Antifungal prophylaxis
     Dosage: UNK
     Route: 065
  2. POSACONAZOLE [Suspect]
     Active Substance: POSACONAZOLE
     Indication: Scedosporium infection
  3. BELATACEPT [Concomitant]
     Active Substance: BELATACEPT
     Indication: Toxicity to various agents
     Dosage: UNK
     Route: 065

REACTIONS (12)
  - Brain abscess [Fatal]
  - Scedosporium infection [Fatal]
  - Infective aneurysm [Fatal]
  - Cerebral infarction [Fatal]
  - Acute kidney injury [Unknown]
  - Gastrointestinal haemorrhage [Unknown]
  - Pneumonia bacterial [Unknown]
  - Seizure [Unknown]
  - Chronic respiratory failure [Unknown]
  - Mental status changes [Unknown]
  - Asthenia [Unknown]
  - Product use in unapproved indication [Unknown]
